FAERS Safety Report 7011022-9 (Version None)
Quarter: 2010Q3

REPORT INFORMATION
  Report Type: 
  Country: None (occurrence: None)
  Receive Date: 20100923
  Receipt Date: 20081027
  Transmission Date: 20110219
  Serious: No
  Sender: FDA-Public Use
  Company Number: US-WYE-H06554608

PATIENT
  Sex: Female

DRUGS (1)
  1. EFFEXOR XR [Suspect]
     Indication: SUICIDE ATTEMPT
     Dosage: UNKNOWN; THEN ^WEANED OFF^

REACTIONS (1)
  - DRUG EXPOSURE DURING PREGNANCY [None]
